FAERS Safety Report 8251000-5 (Version None)
Quarter: 2012Q2

REPORT INFORMATION
  Report Type: 
  Country: None (occurrence: None)
  Receive Date: 20120402
  Receipt Date: 20120329
  Transmission Date: 20120825
  Serious: No
  Sender: FDA-Public Use
  Company Number: US-PFIZER INC-2012048160

PATIENT
  Sex: Female

DRUGS (9)
  1. MACROBID [Suspect]
     Dosage: UNK
  2. VIOXX [Suspect]
     Dosage: UNK
  3. DEMEROL [Suspect]
     Dosage: UNK
  4. LIPITOR [Suspect]
     Dosage: UNK
  5. DOXYCYCLINE [Suspect]
     Dosage: UNK
  6. CIPROFLOXACIN [Suspect]
     Dosage: UNK
  7. LEVAQUIN [Suspect]
     Dosage: UNK
  8. ZOCOR [Suspect]
     Dosage: UNK
  9. NITROFURANTOIN [Suspect]
     Dosage: UNK

REACTIONS (2)
  - DRUG INTOLERANCE [None]
  - PARAESTHESIA [None]
